FAERS Safety Report 13581936 (Version 1)
Quarter: 2017Q2

REPORT INFORMATION
  Report Type: Spontaneous
  Country: DE (occurrence: DE)
  Receive Date: 20170525
  Receipt Date: 20170525
  Transmission Date: 20170830
  Serious: Yes (Death, Other)
  Sender: FDA-Public Use
  Company Number: DE-HQ SPECIALTY-DE-2017INT000167

PATIENT
  Age: 56 Year
  Sex: Male

DRUGS (6)
  1. BLEOMYCIN [Suspect]
     Active Substance: BLEOMYCIN SULFATE
     Indication: METASTASES TO LYMPH NODES
  2. ETOPOSIDE. [Suspect]
     Active Substance: ETOPOSIDE
     Indication: SEMINOMA
     Dosage: UNK
  3. BLEOMYCIN [Suspect]
     Active Substance: BLEOMYCIN SULFATE
     Indication: SEMINOMA
     Dosage: UNK
  4. CISPLATIN. [Suspect]
     Active Substance: CISPLATIN
     Indication: SEMINOMA
     Dosage: UNK
  5. CISPLATIN. [Suspect]
     Active Substance: CISPLATIN
     Indication: METASTASES TO LYMPH NODES
  6. ETOPOSIDE. [Suspect]
     Active Substance: ETOPOSIDE
     Indication: METASTASES TO LYMPH NODES

REACTIONS (3)
  - Brain oedema [Fatal]
  - Cerebral infarction [Unknown]
  - Subdural haemorrhage [Unknown]
